FAERS Safety Report 7911511-6 (Version None)
Quarter: 2011Q4

REPORT INFORMATION
  Report Type: 
  Country: None (occurrence: None)
  Receive Date: 20111101
  Receipt Date: 20110810
  Transmission Date: 20120403
  Serious: No
  Sender: FDA-Public Use
  Company Number: 11-1934(0)

PATIENT
  Age: 31 Year
  Sex: Female
  Weight: 68 kg

DRUGS (10)
  1. PERCOCET [Concomitant]
  2. TRI-CYCLEN (CILEST) [Concomitant]
  3. ZANTAC [Concomitant]
  4. CLONAZEPAM [Concomitant]
  5. ZANAFLEX [Concomitant]
  6. ADVAIR HFA [Concomitant]
  7. XEOMIN [Suspect]
     Indication: TORTICOLLIS
     Dosage: (150 IU, 1 IN 1 TOTAL), INTRAMUSCULAR, (150 IU, 1 IN 1 TOTAL), INTRAMUSCULAR
     Route: 030
     Dates: start: 20110524, end: 20110524
  8. XEOMIN [Suspect]
     Indication: TORTICOLLIS
     Dosage: (150 IU, 1 IN 1 TOTAL), INTRAMUSCULAR, (150 IU, 1 IN 1 TOTAL), INTRAMUSCULAR
     Route: 030
     Dates: start: 20110728, end: 20110728
  9. ALBUTEROL [Concomitant]
  10. ZYRTEC [Concomitant]

REACTIONS (1)
  - DRUG INEFFECTIVE [None]
